FAERS Safety Report 9684125 (Version 1)
Quarter: 2013Q4

REPORT INFORMATION
  Report Type: Spontaneous
  Country: US (occurrence: None)
  Receive Date: 20131111
  Receipt Date: 20131111
  Transmission Date: 20140711
  Serious: No
  Sender: FDA-Public Use
  Company Number: None

PATIENT
  Age: 48 Year
  Sex: Female
  Weight: 71.67 kg

DRUGS (1)
  1. MIRVASO TOPICAL GEL 0.33% GALDERMA [Suspect]
     Indication: ROSACEA
     Dosage: AS DIRECTED  ONCE DAILY APPLIED TO A SURFACE, USUALLY THE SKIN
     Route: 061
     Dates: start: 20131109, end: 20131109

REACTIONS (4)
  - Flushing [None]
  - Application site reaction [None]
  - Feeling hot [None]
  - Discomfort [None]
